FAERS Safety Report 22339720 (Version 1)
Quarter: 2023Q2

REPORT INFORMATION
  Report Type: Spontaneous
  Country: US (occurrence: US)
  Receive Date: 20230518
  Receipt Date: 20230518
  Transmission Date: 20230722
  Serious: Yes (Other)
  Sender: FDA-Public Use
  Company Number: US-ORGANON-O2303USA001718

PATIENT
  Age: 18 Year
  Sex: Female
  Weight: 57.596 kg

DRUGS (2)
  1. NEXPLANON [Suspect]
     Active Substance: ETONOGESTREL
     Indication: Contraception
     Dosage: 1 IMPLANT OF 68 MG IN UPPER LEFT ARM
     Route: 058
     Dates: start: 20200810, end: 20230317
  2. NEXPLANON [Suspect]
     Active Substance: ETONOGESTREL
     Indication: Contraception
     Dosage: 1 IMPLANT, IN RIGHT ARM
     Route: 059
     Dates: start: 20230317

REACTIONS (9)
  - General anaesthesia [Unknown]
  - Surgery [Unknown]
  - Device dislocation [Recovered/Resolved]
  - Device issue [Recovered/Resolved]
  - Device placement issue [Not Recovered/Not Resolved]
  - Complication associated with device [Recovered/Resolved]
  - Complication of device removal [Recovered/Resolved]
  - Vaginal haemorrhage [Unknown]
  - Intermenstrual bleeding [Recovered/Resolved]

NARRATIVE: CASE EVENT DATE: 20200801
